FAERS Safety Report 25241292 (Version 2)
Quarter: 2025Q2

REPORT INFORMATION
  Report Type: Spontaneous
  Country: US (occurrence: US)
  Receive Date: 20250425
  Receipt Date: 20250606
  Transmission Date: 20250717
  Serious: Yes (Other)
  Sender: MERCK SHARP & DOHME LLC
  Company Number: US-009507513-2280157

PATIENT
  Age: 86 Year
  Sex: Female

DRUGS (3)
  1. PEMBROLIZUMAB [Suspect]
     Active Substance: PEMBROLIZUMAB
     Indication: Ovarian endometrioid carcinoma
     Dosage: 200 MG IV Q21D
     Route: 042
     Dates: start: 20240725, end: 20240905
  2. PEMBROLIZUMAB [Suspect]
     Active Substance: PEMBROLIZUMAB
     Indication: Ovarian endometrioid carcinoma
     Dosage: 200 MG IV Q21D
     Route: 042
     Dates: start: 20241017
  3. LENVATINIB [Concomitant]
     Active Substance: LENVATINIB
     Indication: Ovarian endometrioid carcinoma
     Route: 048

REACTIONS (1)
  - Polymyalgia rheumatica [Recovered/Resolved with Sequelae]

NARRATIVE: CASE EVENT DATE: 20240926
